FAERS Safety Report 20342911 (Version 1)
Quarter: 2022Q1

REPORT INFORMATION
  Report Type: Spontaneous
  Country: US (occurrence: US)
  Receive Date: 20220117
  Receipt Date: 20220117
  Transmission Date: 20220423
  Serious: Yes (Other)
  Sender: FDA-Public Use
  Company Number: US-ANIPHARMA-2022-US-000929

PATIENT
  Sex: Male

DRUGS (5)
  1. CASODEX [Suspect]
     Active Substance: BICALUTAMIDE
     Indication: Product used for unknown indication
     Route: 065
     Dates: start: 201701, end: 201704
  2. JEVTANA [Suspect]
     Active Substance: CABAZITAXEL
     Route: 065
     Dates: start: 20210106, end: 20210915
  3. TAXOTERE [Suspect]
     Active Substance: DOCETAXEL
     Dates: start: 20200203, end: 20200526
  4. XTANDI [Suspect]
     Active Substance: ENZALUTAMIDE
     Route: 065
     Dates: start: 201705, end: 201811
  5. LUPRON [Suspect]
     Active Substance: LEUPROLIDE ACETATE
     Route: 065
     Dates: start: 2008

REACTIONS (2)
  - Hormone-refractory prostate cancer [Unknown]
  - Disease progression [Unknown]
